FAERS Safety Report 8766099 (Version 2)
Quarter: 2012Q4

REPORT INFORMATION
  Report Type: 
  Country: JP (occurrence: JP)
  Receive Date: 20120904
  Receipt Date: 20121204
  Transmission Date: 20130627
  Serious: Yes (Hospitalization)
  Sender: FDA-Public Use
  Company Number: JP-009507513-1208JPN012191

PATIENT
  Age: 69 Year
  Sex: Female
  Weight: 52 kg

DRUGS (10)
  1. PEGINTRON [Suspect]
     Indication: CHRONIC HEPATITIS C
     Dosage: 1.5 microgram/Kilogram/week
     Route: 058
     Dates: start: 20120322, end: 20120530
  2. REBETOL [Suspect]
     Indication: CHRONIC HEPATITIS C
     Dosage: 200 mg, qd
     Route: 048
     Dates: start: 20120502, end: 20120605
  3. REBETOL [Suspect]
     Dosage: 400 mg, qd
     Route: 048
     Dates: start: 20120322, end: 20120501
  4. TELAVIC [Suspect]
     Indication: CHRONIC HEPATITIS C
     Dosage: 500 mg, qd
     Route: 048
     Dates: start: 20120524, end: 20120605
  5. TELAVIC [Suspect]
     Dosage: 1500 mg, qd
     Route: 048
     Dates: start: 20120322, end: 20120326
  6. TELAVIC [Suspect]
     Dosage: 1000 mg, qd
     Route: 048
     Dates: start: 20120327, end: 20120501
  7. TELAVIC [Suspect]
     Dosage: 500 mg, qd
     Route: 048
     Dates: start: 20120502, end: 20120516
  8. TELAVIC [Suspect]
     Dosage: Administering every other day of 500mg and 1000mg
     Route: 048
     Dates: start: 20120517, end: 20120523
  9. JUVELA N [Concomitant]
     Indication: CHRONIC HEPATITIS C
     Dosage: 600 mg, qd
     Route: 048
     Dates: end: 20120606
  10. CINAL [Concomitant]
     Indication: CHRONIC HEPATITIS C
     Dosage: 6 DF, qd
     Route: 048
     Dates: end: 20120606

REACTIONS (1)
  - Dizziness [Recovered/Resolved]
